FAERS Safety Report 9442811 (Version 1)
Quarter: 2013Q3

REPORT INFORMATION
  Report Type: Spontaneous
  Country: US (occurrence: US)
  Receive Date: 20130806
  Receipt Date: 20130806
  Transmission Date: 20140515
  Serious: No
  Sender: FDA-Public Use
  Company Number: US-ABBOTT-12P-163-0970592-00

PATIENT
  Sex: Male
  Weight: 63.56 kg

DRUGS (2)
  1. DEPAKOTE ER [Suspect]
     Indication: PRODUCT USED FOR UNKNOWN INDICATION
     Dates: start: 2010, end: 201203
  2. DEPAKOTE ER [Suspect]

REACTIONS (8)
  - Abnormal behaviour [Not Recovered/Not Resolved]
  - Crying [Not Recovered/Not Resolved]
  - Depression [Not Recovered/Not Resolved]
  - Aggression [Not Recovered/Not Resolved]
  - Negative thoughts [Not Recovered/Not Resolved]
  - Anger [Not Recovered/Not Resolved]
  - Amnesia [Not Recovered/Not Resolved]
  - Paranoia [Unknown]
